FAERS Safety Report 9596690 (Version 3)
Quarter: 2013Q4

REPORT INFORMATION
  Report Type: Spontaneous
  Country: US (occurrence: US)
  Receive Date: 20131004
  Receipt Date: 20131213
  Transmission Date: 20140711
  Serious: Yes (Other)
  Sender: FDA-Public Use
  Company Number: US-GLAXOSMITHKLINE-A1044164A

PATIENT
  Sex: Female

DRUGS (5)
  1. ZYBAN [Suspect]
     Indication: SMOKING CESSATION THERAPY
     Route: 048
     Dates: start: 1995, end: 1995
  2. ZOLOFT [Suspect]
     Indication: BIPOLAR DISORDER
     Route: 048
     Dates: start: 1992, end: 200502
  3. CYMBALTA [Concomitant]
  4. XANAX [Concomitant]
  5. DICYCLOMINE [Concomitant]

REACTIONS (5)
  - Grand mal convulsion [Recovered/Resolved]
  - Fall [Recovered/Resolved]
  - Drug interaction [Recovered/Resolved]
  - Foaming at mouth [Recovered/Resolved]
  - Postictal state [Recovered/Resolved]
